FAERS Safety Report 10722585 (Version 1)
Quarter: 2015Q1

REPORT INFORMATION
  Report Type: Spontaneous
  Country: US (occurrence: US)
  Receive Date: 20150120
  Receipt Date: 20150120
  Transmission Date: 20150721
  Serious: No
  Sender: FDA-Public Use
  Company Number: US-TEVA-485482USA

PATIENT
  Sex: Female

DRUGS (1)
  1. DEXTROAMPHETAMINE SULFATE. [Suspect]
     Active Substance: DEXTROAMPHETAMINE SULFATE
     Dates: start: 201404

REACTIONS (5)
  - Weight decreased [Recovered/Resolved]
  - Chest pain [Recovered/Resolved]
  - Product physical issue [Recovered/Resolved]
  - Nausea [Recovered/Resolved]
  - Product measured potency issue [Recovered/Resolved]
